FAERS Safety Report 15583579 (Version 1)
Quarter: 2018Q4

REPORT INFORMATION
  Report Type: Spontaneous
  Country: CH (occurrence: CH)
  Receive Date: 20181105
  Receipt Date: 20181105
  Transmission Date: 20190205
  Serious: Yes (Life-Threatening, Hospitalization, Other)
  Sender: FDA-Public Use
  Company Number: CH-BRISTOL-MYERS SQUIBB COMPANY-BMS-2018-100402

PATIENT
  Age: 56 Year
  Sex: Female

DRUGS (4)
  1. BEXIN [Concomitant]
     Active Substance: DEXTROMETHORPHAN HYDROBROMIDE
     Indication: PRODUCT USED FOR UNKNOWN INDICATION
     Route: 065
  2. NOVALGIN (METAMIZOLE SODIUM) [Interacting]
     Active Substance: METAMIZOLE SODIUM
     Indication: PRODUCT USED FOR UNKNOWN INDICATION
     Route: 065
  3. ORENCIA [Suspect]
     Active Substance: ABATACEPT
     Indication: PRODUCT USED FOR UNKNOWN INDICATION
     Dosage: 125 MG
     Route: 058
     Dates: start: 20180529, end: 20180903
  4. DAFALGAN [Concomitant]
     Active Substance: ACETAMINOPHEN
     Indication: PRODUCT USED FOR UNKNOWN INDICATION
     Dosage: AS NECESSARY
     Route: 048

REACTIONS (8)
  - Drug interaction [Not Recovered/Not Resolved]
  - Tonsillitis [Unknown]
  - Enterocolitis haemorrhagic [Not Recovered/Not Resolved]
  - Septic shock [Recovered/Resolved with Sequelae]
  - Neutropenic colitis [Not Recovered/Not Resolved]
  - Agranulocytosis [Recovered/Resolved]
  - Acute kidney injury [Unknown]
  - Diverticulitis [Unknown]

NARRATIVE: CASE EVENT DATE: 20180529
